FAERS Safety Report 14092310 (Version 1)
Quarter: 2017Q4

REPORT INFORMATION
  Report Type: Spontaneous
  Country: AU (occurrence: AU)
  Receive Date: 20171016
  Receipt Date: 20171016
  Transmission Date: 20180321
  Serious: Yes (Death)
  Sender: FDA-Public Use
  Company Number: AU-BRISTOL-MYERS SQUIBB COMPANY-BMS-2017-092459

PATIENT
  Sex: Male
  Weight: 3.78 kg

DRUGS (2)
  1. DAKLINZA [Suspect]
     Active Substance: DACLATASVIR
     Indication: PRODUCT USED FOR UNKNOWN INDICATION
     Dosage: 60 MG, QD
     Route: 064
     Dates: start: 20161114, end: 20170103
  2. SOVALDI [Suspect]
     Active Substance: SOFOSBUVIR
     Indication: PRODUCT USED FOR UNKNOWN INDICATION
     Dosage: 400 MG, QD
     Route: 064
     Dates: start: 20161114, end: 20170103

REACTIONS (2)
  - Umbilical cord around neck [Fatal]
  - Foetal exposure during pregnancy [Unknown]

NARRATIVE: CASE EVENT DATE: 20170819
